FAERS Safety Report 5757679-1 (Version None)
Quarter: 2008Q2

REPORT INFORMATION
  Report Type: 
  Country: None (occurrence: None)
  Receive Date: 20080603
  Receipt Date: 20080530
  Transmission Date: 20081010
  Serious: Yes (Hospitalization, Other)
  Sender: FDA-Public Use
  Company Number: US-MERCK-0710USA02700

PATIENT
  Age: 59 Year
  Sex: Female
  Weight: 53 kg

DRUGS (6)
  1. FOSAMAX [Suspect]
     Indication: OSTEOPOROSIS
     Route: 048
     Dates: start: 19970217, end: 20000401
  2. FOSAMAX [Suspect]
     Route: 048
     Dates: start: 20010510, end: 20061201
  3. FOSAMAX [Suspect]
     Route: 048
     Dates: start: 20000401, end: 20010509
  4. FOSAMAX [Suspect]
     Indication: OSTEOPENIA
     Route: 048
     Dates: start: 19970217, end: 20000401
  5. FOSAMAX [Suspect]
     Route: 048
     Dates: start: 20010510, end: 20061201
  6. FOSAMAX [Suspect]
     Route: 048
     Dates: start: 20000401, end: 20010509

REACTIONS (17)
  - ABDOMINAL PAIN [None]
  - ADVERSE EVENT [None]
  - ANAEMIA MACROCYTIC [None]
  - ARTHRITIS [None]
  - FOOT FRACTURE [None]
  - GENERALISED ANXIETY DISORDER [None]
  - HERNIA [None]
  - IMPAIRED HEALING [None]
  - NEUROMA [None]
  - ORAL TORUS [None]
  - OSTEONECROSIS [None]
  - RHEUMATOID ARTHRITIS [None]
  - SINUSITIS [None]
  - SJOGREN'S SYNDROME [None]
  - TENDONITIS [None]
  - TRIGGER FINGER [None]
  - VOMITING [None]
